FAERS Safety Report 22083076 (Version 2)
Quarter: 2023Q2

REPORT INFORMATION
  Report Type: Other
  Country: MX (occurrence: None)
  Receive Date: 20230310
  Receipt Date: 20230531
  Transmission Date: 20230721
  Serious: Yes (Other)
  Sender: FDA-Public Use
  Company Number: MX-ROCHE-3297932

PATIENT
  Sex: Female
  Weight: 61 kg

DRUGS (7)
  1. PERTUZUMAB [Suspect]
     Active Substance: PERTUZUMAB
     Indication: Breast cancer
     Dosage: DOSE AND FREQUENCY WERE NOT INFORMED - 6 CYCLES
     Route: 042
  2. TRASTUZUMAB [Suspect]
     Active Substance: TRASTUZUMAB
     Indication: Breast cancer
     Dosage: DOSE AND FREQUENCY WERE NOT INFORMED - 6 CYCLES
     Route: 042
  3. KADCYLA [Suspect]
     Active Substance: ADO-TRASTUZUMAB EMTANSINE
     Indication: Breast cancer
     Route: 042
     Dates: start: 20230307
  4. DOCETAXEL [Concomitant]
     Active Substance: DOCETAXEL
     Indication: Breast cancer
     Route: 065
  5. PALONOSETRON [Concomitant]
     Active Substance: PALONOSETRON
     Dosage: APPLY BOLUS IN 30 SECONDS
     Route: 041
  6. DEXAMETHASONE [Concomitant]
     Active Substance: DEXAMETHASONE
     Dosage: APPLY IN 100 ML OF SALINE SOLUTION
  7. APREPITANT [Concomitant]
     Active Substance: APREPITANT
     Dosage: 125/80 MG, ONE CAPSULE VIA ORAL ROUTE, EVERY 24 HOURS, DURING 3 DAYS
     Route: 048

REACTIONS (24)
  - Metastases to central nervous system [Unknown]
  - Skin hypertrophy [Unknown]
  - Breast mass [Unknown]
  - Skin reaction [Unknown]
  - Neoplasm [Unknown]
  - Nervous system disorder [Unknown]
  - Hemiparesis [Unknown]
  - Somnolence [Unknown]
  - Headache [Unknown]
  - Lymphadenopathy [Unknown]
  - Gynaecomastia [Unknown]
  - Oedema [Unknown]
  - Asthenia [Unknown]
  - Muscle disorder [Unknown]
  - Lymphadenopathy mediastinal [Unknown]
  - Paratracheal lymphadenopathy [Unknown]
  - Hilar lymphadenopathy [Unknown]
  - Positron emission tomogram abnormal [Unknown]
  - Neoplasm [Unknown]
  - Ultrasound breast abnormal [Unknown]
  - Breast neoplasm [Unknown]
  - Mammogram abnormal [Unknown]
  - Osteolysis [Unknown]
  - Adrenal mass [Unknown]
